FAERS Safety Report 13074145 (Version 4)
Quarter: 2017Q3

REPORT INFORMATION
  Report Type: Spontaneous
  Country: US (occurrence: US)
  Receive Date: 20161229
  Receipt Date: 20170927
  Transmission Date: 20171127
  Serious: Yes (Hospitalization, Other)
  Sender: FDA-Public Use
  Company Number: US-TEVA-724502USA

PATIENT
  Age: 65 Year
  Sex: Male
  Weight: 108.96 kg

DRUGS (44)
  1. AMLODIPINE BESILATE [Concomitant]
     Active Substance: AMLODIPINE BESYLATE
     Indication: BLOOD PRESSURE ABNORMAL
     Dosage: 5 MILLIGRAM DAILY;
     Dates: start: 2011
  2. OMEGA 3 [Concomitant]
     Active Substance: OMEGA-3 FATTY ACIDS
     Indication: CORONARY ARTERY DISEASE
     Dosage: 4000 MILLIGRAM DAILY;
     Dates: start: 2003
  3. LIPITOR [Concomitant]
     Active Substance: ATORVASTATIN CALCIUM
  4. ECOTRIN [Concomitant]
     Active Substance: ASPIRIN
  5. WARFARIN [Suspect]
     Active Substance: WARFARIN
     Dosage: 3 MILLIGRAM DAILY;
     Route: 065
  6. SUTENT [Suspect]
     Active Substance: SUNITINIB MALATE
     Dosage: DAILY 4 WEEKS ON AND 2 WEEKS OFF
     Route: 048
  7. GABAPENTIN. [Concomitant]
     Active Substance: GABAPENTIN
     Indication: NEURALGIA
     Dosage: 100 MILLIGRAM DAILY;
     Dates: start: 2014
  8. COUMADIN [Concomitant]
     Active Substance: WARFARIN SODIUM
  9. OMACOR [Concomitant]
     Active Substance: OMEGA-3-ACID ETHYL ESTERS
  10. LASIX [Concomitant]
     Active Substance: FUROSEMIDE
     Dosage: 40 MILLIGRAM DAILY; 1.5 TABLETS
     Dates: start: 2012
  11. METOPROLOL. [Concomitant]
     Active Substance: METOPROLOL
     Indication: CARDIAC DISORDER
     Dosage: 1.5 TABLET IN THE MORNING, 1 TABLET IN THE EVENING
     Dates: start: 2008
  12. METOPROLOL. [Concomitant]
     Active Substance: METOPROLOL
     Indication: ATRIAL FIBRILLATION
  13. ATORVASTATIN [Concomitant]
     Active Substance: ATORVASTATIN
     Indication: BLOOD CHOLESTEROL INCREASED
     Dosage: 20 MILLIGRAM DAILY;
     Dates: start: 2001
  14. COUMADIN [Concomitant]
     Active Substance: WARFARIN SODIUM
  15. LASIX [Concomitant]
     Active Substance: FUROSEMIDE
  16. NORVASC [Concomitant]
     Active Substance: AMLODIPINE BESYLATE
  17. ROCALTROL [Concomitant]
     Active Substance: CALCITRIOL
  18. SUTENT [Suspect]
     Active Substance: SUNITINIB MALATE
     Route: 048
     Dates: start: 2013
  19. CLEOCIN [Concomitant]
     Active Substance: CLINDAMYCIN PHOSPHATE
  20. LOMOTIL [Concomitant]
     Active Substance: ATROPINE SULFATE\DIPHENOXYLATE HYDROCHLORIDE
  21. MICRO K [Concomitant]
  22. PRILOSEC [Concomitant]
     Active Substance: OMEPRAZOLE MAGNESIUM
  23. ALLOPURINOL. [Concomitant]
     Active Substance: ALLOPURINOL
     Indication: GOUT
     Dosage: 100 MILLIGRAM DAILY;
     Dates: start: 2011
  24. HYDRALAZINE [Concomitant]
     Active Substance: HYDRALAZINE HYDROCHLORIDE
     Indication: BLOOD PRESSURE MEASUREMENT
     Dosage: 150 MILLIGRAM DAILY;
     Dates: start: 2007
  25. GABAPENTIN. [Concomitant]
     Active Substance: GABAPENTIN
     Indication: CRANIAL NERVE DISORDER
  26. OSCAL 500-D [Concomitant]
  27. APRESOLINE HYDROCHLORIDE [Concomitant]
     Active Substance: HYDRALAZINE HYDROCHLORIDE
  28. WARFARIN [Suspect]
     Active Substance: WARFARIN
     Indication: ATRIAL FIBRILLATION
     Dosage: 2 MILLIGRAM DAILY;
     Dates: start: 2006, end: 20161120
  29. CALCITRIOL. [Concomitant]
     Active Substance: CALCITRIOL
     Dosage: 5 MICROGRAM DAILY;
     Dates: start: 2012
  30. PERCOCET [Concomitant]
     Active Substance: ACETAMINOPHEN\OXYCODONE HYDROCHLORIDE
  31. CIPRO [Concomitant]
     Active Substance: CIPROFLOXACIN HYDROCHLORIDE
  32. COMPAZINE [Concomitant]
     Active Substance: PROCHLORPERAZINE MALEATE
  33. ZYRTEC [Concomitant]
     Active Substance: CETIRIZINE HYDROCHLORIDE
  34. SUTENT [Suspect]
     Active Substance: SUNITINIB MALATE
     Indication: RENAL CELL CARCINOMA
     Dosage: 1 CAPSULE BY MOUTH 4 WEEKS ON AND ONE WEEK OFF
     Route: 048
     Dates: start: 201404, end: 20161114
  35. LEVOTHYROXINE. [Concomitant]
     Active Substance: LEVOTHYROXINE
     Indication: THYROID HORMONE REPLACEMENT THERAPY
     Dosage: 75 MICROGRAM DAILY;
     Dates: start: 2013
  36. LASIX [Concomitant]
     Active Substance: FUROSEMIDE
     Indication: SWELLING
     Dosage: 40 MILLIGRAM DAILY;
     Dates: start: 2012
  37. OMEPRAZOLE. [Concomitant]
     Active Substance: OMEPRAZOLE
     Indication: GASTROOESOPHAGEAL REFLUX DISEASE
     Dosage: 20 MILLIGRAM DAILY;
     Route: 048
     Dates: start: 2002
  38. LOVAZA [Concomitant]
     Active Substance: OMEGA-3-ACID ETHYL ESTERS
  39. NORCO [Concomitant]
     Active Substance: ACETAMINOPHEN\HYDROCODONE BITARTRATE
  40. TOPROL XL [Concomitant]
     Active Substance: METOPROLOL SUCCINATE
  41. NEURONTIN [Concomitant]
     Active Substance: GABAPENTIN
  42. POTASSIUM [Concomitant]
     Active Substance: POTASSIUM
     Indication: BLOOD POTASSIUM DECREASED
     Dosage: 10 MILLIEQUIVALENTS DAILY;
     Route: 048
     Dates: start: 2014
  43. ZYLOPRIM [Concomitant]
     Active Substance: ALLOPURINOL
  44. FOLBEE [Concomitant]
     Active Substance: CYANOCOBALAMIN\FOLIC ACID\PYRIDOXINE HYDROCHLORIDE

REACTIONS (15)
  - Hypoglycaemia [Recovered/Resolved]
  - Blood phosphorus decreased [Not Recovered/Not Resolved]
  - Coagulation time prolonged [Recovered/Resolved]
  - Memory impairment [Not Recovered/Not Resolved]
  - Renal cell carcinoma [Recovered/Resolved]
  - Fatigue [Not Recovered/Not Resolved]
  - Blood calcium decreased [Not Recovered/Not Resolved]
  - Procedural haemorrhage [Recovered/Resolved]
  - Renal impairment [Not Recovered/Not Resolved]
  - International normalised ratio increased [Recovered/Resolved]
  - Dry skin [Not Recovered/Not Resolved]
  - Haematoma [Recovered/Resolved]
  - Post procedural infection [Recovered/Resolved]
  - Diarrhoea [Not Recovered/Not Resolved]
  - Post procedural haemorrhage [Recovered/Resolved]

NARRATIVE: CASE EVENT DATE: 201602
